APPROVED DRUG PRODUCT: XYLOCAINE
Active Ingredient: LIDOCAINE
Strength: 5% **Federal Register determination that product was not discontinued or withdrawn for safety or effectiveness reasons**
Dosage Form/Route: OINTMENT;TOPICAL
Application: N008048 | Product #001
Applicant: ASTRAZENECA LP
Approved: Approved Prior to Jan 1, 1982 | RLD: Yes | RS: No | Type: DISCN